FAERS Safety Report 14198360 (Version 1)
Quarter: 2017Q4

REPORT INFORMATION
  Report Type: Spontaneous
  Country: US (occurrence: US)
  Receive Date: 20171116
  Receipt Date: 20171116
  Transmission Date: 20180321
  Serious: Yes (Other)
  Sender: FDA-Public Use
  Company Number: None

PATIENT
  Age: 73 Year
  Sex: Female

DRUGS (1)
  1. GABAPENTIN. [Suspect]
     Active Substance: GABAPENTIN
     Indication: NEURALGIA
     Route: 048
     Dates: start: 20160302, end: 20160711

REACTIONS (4)
  - Madarosis [None]
  - Drug ineffective [None]
  - Thyroid hormones increased [None]
  - Alopecia [None]

NARRATIVE: CASE EVENT DATE: 20170619
